FAERS Safety Report 19737133 (Version 1)
Quarter: 2021Q3

REPORT INFORMATION
  Report Type: Spontaneous
  Country: US (occurrence: US)
  Receive Date: 20210824
  Receipt Date: 20210824
  Transmission Date: 20211014
  Serious: No
  Sender: FDA-Public Use
  Company Number: ALC2021US001743

PATIENT
  Sex: Female

DRUGS (1)
  1. ZADITOR [Suspect]
     Active Substance: KETOTIFEN FUMARATE
     Indication: DRY EYE
     Dosage: UNK
     Route: 047

REACTIONS (4)
  - Erythema of eyelid [Recovered/Resolved]
  - Hypersensitivity [Recovered/Resolved]
  - Swelling of eyelid [Recovered/Resolved]
  - Eyelid skin dryness [Recovered/Resolved]
